FAERS Safety Report 8138547-7 (Version None)
Quarter: 2012Q1

REPORT INFORMATION
  Report Type: 
  Country: None (occurrence: None)
  Receive Date: 20120215
  Receipt Date: 20120206
  Transmission Date: 20120608
  Serious: Yes (Other)
  Sender: FDA-Public Use
  Company Number: BR-SANOFI-AVENTIS-2012SA007955

PATIENT
  Sex: Male
  Weight: 75 kg

DRUGS (4)
  1. OPTIPEN [Suspect]
     Indication: DEVICE THERAPY
     Dates: start: 20060101
  2. LANTUS [Suspect]
     Indication: TYPE 2 DIABETES MELLITUS
     Route: 065
     Dates: start: 20060101
  3. OMEPRAZOLE [Concomitant]
     Indication: GASTRITIS
     Dosage: STRENGTH: 20 MG
  4. AUTOPEN 24 [Suspect]
     Indication: DEVICE THERAPY

REACTIONS (2)
  - CEREBROVASCULAR ACCIDENT [None]
  - MOTOR DYSFUNCTION [None]
